FAERS Safety Report 8670421 (Version 2)
Quarter: 2012Q4

REPORT INFORMATION
  Report Type: 
  Country: US (occurrence: US)
  Receive Date: 20120718
  Receipt Date: 20121019
  Transmission Date: 20130627
  Serious: Yes (Hospitalization)
  Sender: FDA-Public Use
  Company Number: US-BAYER-2012-070529

PATIENT
  Age: 21 Year
  Sex: Female

DRUGS (1)
  1. MIRENA [Suspect]
     Indication: CONTRACEPTION
     Dosage: 20 mcg/24hr, CONT
     Route: 015
     Dates: start: 200906, end: 20090923

REACTIONS (4)
  - Device dislocation [Recovered/Resolved with Sequelae]
  - Procedural pain [None]
  - Pain [Not Recovered/Not Resolved]
  - Device dislocation [Recovered/Resolved with Sequelae]
